FAERS Safety Report 6008185-0 (Version None)
Quarter: 2008Q4

REPORT INFORMATION
  Report Type: 
  Country: None (occurrence: None)
  Receive Date: 20081217
  Receipt Date: 20080731
  Transmission Date: 20090506
  Serious: No
  Sender: FDA-Public Use
  Company Number: US-ASTRAZENECA-2008UW15115

PATIENT
  Sex: Female
  Weight: 78.5 kg

DRUGS (11)
  1. CRESTOR [Suspect]
     Indication: HYPERCHOLESTEROLAEMIA
     Dosage: 10 MG
     Route: 048
     Dates: start: 20080725
  2. MACROBID [Suspect]
     Dates: start: 20080721, end: 20080728
  3. TOPROL-XL [Concomitant]
  4. AZAPRO [Concomitant]
  5. ASPIRIN [Concomitant]
  6. POTASSIUM CHLORIDE [Concomitant]
  7. FUROSEMIDE [Concomitant]
  8. LOTRIL [Concomitant]
  9. TRAZATAN [Concomitant]
  10. ALAPROZALAM [Concomitant]
  11. TYLENOL (CAPLET) [Concomitant]

REACTIONS (1)
  - FLATULENCE [None]
